FAERS Safety Report 15180374 (Version 1)
Quarter: 2018Q3

REPORT INFORMATION
  Report Type: Spontaneous
  Country: US (occurrence: US)
  Receive Date: 20180723
  Receipt Date: 20180723
  Transmission Date: 20181010
  Serious: No
  Sender: FDA-Public Use
  Company Number: US-TEVA-2018-US-929705

PATIENT
  Age: 63 Year
  Sex: Female

DRUGS (8)
  1. LEVETIRACETA [Concomitant]
     Route: 065
  2. COPAXONE [Suspect]
     Active Substance: GLATIRAMER ACETATE
     Indication: MULTIPLE SCLEROSIS
     Dosage: PREFILLED SYRINGE
     Route: 058
     Dates: start: 20171214
  3. LITHIUM. [Concomitant]
     Active Substance: LITHIUM
     Route: 065
  4. REXULTI [Concomitant]
     Active Substance: BREXPIPRAZOLE
     Route: 065
  5. CLONAZEPAM. [Concomitant]
     Active Substance: CLONAZEPAM
     Route: 065
  6. MODAFINIL. [Concomitant]
     Active Substance: MODAFINIL
     Route: 065
  7. FLUOXETINE [Concomitant]
     Active Substance: FLUOXETINE HYDROCHLORIDE
     Route: 065
  8. TRAZODONE [Concomitant]
     Active Substance: TRAZODONE HYDROCHLORIDE
     Route: 065

REACTIONS (2)
  - Eye pain [Not Recovered/Not Resolved]
  - Headache [Not Recovered/Not Resolved]

NARRATIVE: CASE EVENT DATE: 20180716
